FAERS Safety Report 23925813 (Version 2)
Quarter: 2024Q2

REPORT INFORMATION
  Report Type: Spontaneous
  Country: US (occurrence: US)
  Receive Date: 20240531
  Receipt Date: 20240604
  Transmission Date: 20240715
  Serious: Yes (Death)
  Sender: FDA-Public Use
  Company Number: US-CHIESI-2024CHF03134

PATIENT
  Age: 3 Day
  Sex: Female

DRUGS (2)
  1. CUROSURF [Suspect]
     Active Substance: PORACTANT ALFA
     Indication: Neonatal respiratory distress syndrome
     Dosage: 160 MILLIGRAM, (1X)
     Route: 038
     Dates: start: 20240405
  2. CAFFEINE CITRATE [Concomitant]
     Active Substance: CAFFEINE CITRATE
     Indication: Product used for unknown indication
     Dosage: UNK

REACTIONS (2)
  - Pulmonary haemorrhage neonatal [Fatal]
  - Cardiac arrest neonatal [Fatal]

NARRATIVE: CASE EVENT DATE: 20240407
